FAERS Safety Report 4750936-7 (Version None)
Quarter: 2005Q3

REPORT INFORMATION
  Report Type: 
  Country: None (occurrence: None)
  Receive Date: 20050818
  Receipt Date: 20050627
  Transmission Date: 20060218
  Serious: Yes (Hospitalization)
  Sender: FDA-Public Use
  Company Number: 2005BI012364

PATIENT
  Age: 38 Year
  Sex: Female
  Weight: 83.9154 kg

DRUGS (4)
  1. AVONEX [Suspect]
     Indication: MULTIPLE SCLEROSIS
     Dosage: 30 UG;QW;IM
     Route: 030
     Dates: start: 20020101, end: 20040101
  2. AVONEX [Suspect]
     Indication: MULTIPLE SCLEROSIS
     Dosage: 30 UG;QW;IM
     Route: 030
     Dates: start: 20040101
  3. NEURONTIN [Concomitant]
  4. ASPIRIN [Concomitant]

REACTIONS (5)
  - ABSCESS LIMB [None]
  - PAIN [None]
  - SENSORY DISTURBANCE [None]
  - VAGINAL ABSCESS [None]
  - VAGINAL CYST [None]
